FAERS Safety Report 7985854-4 (Version None)
Quarter: 2011Q4

REPORT INFORMATION
  Report Type: 
  Country: None (occurrence: None)
  Receive Date: 20111216
  Receipt Date: 20111215
  Transmission Date: 20120403
  Serious: Yes (Other)
  Sender: FDA-Public Use
  Company Number: US-PFIZER INC-2011034254

PATIENT
  Sex: Female
  Weight: 59.184 kg

DRUGS (10)
  1. DONEPEZIL HCL [Suspect]
     Dosage: 5 MG, 2X/DAY
     Route: 048
     Dates: start: 20100901, end: 20100908
  2. DONEPEZIL HCL [Suspect]
     Dosage: 5 MG, 1X/DAY
     Route: 048
     Dates: start: 20100911, end: 20101108
  3. FOLIC ACID [Suspect]
  4. LOTENSIN [Suspect]
     Dosage: UNK
  5. DONEPEZIL HCL [Suspect]
     Dosage: EVENING CAPSULE HELD
     Dates: start: 20100909, end: 20100910
  6. METOPROLOL [Suspect]
  7. CRESTOR [Suspect]
  8. DONEPEZIL HCL [Suspect]
     Indication: DEMENTIA ALZHEIMER'S TYPE
     Dosage: 5 MG, 1X/DAY
     Route: 048
     Dates: start: 20100721, end: 20101108
  9. VALTREX [Suspect]
  10. SYNTHROID [Concomitant]
     Indication: HYPOTHYROIDISM
     Dosage: 50 UG, TAB 1X/DAY
     Dates: start: 20100511

REACTIONS (1)
  - LIVER INJURY [None]
